FAERS Safety Report 25072450 (Version 1)
Quarter: 2025Q1

REPORT INFORMATION
  Report Type: Report from Study
  Country: KR (occurrence: KR)
  Receive Date: 20250313
  Receipt Date: 20250313
  Transmission Date: 20250408
  Serious: Yes (Other)
  Sender: TAKEDA
  Company Number: KR-TAKEDA-2025TUS025164

PATIENT
  Age: 35 Year
  Sex: Male

DRUGS (9)
  1. BRIGATINIB [Suspect]
     Active Substance: BRIGATINIB
     Indication: Non-small cell lung cancer
     Dosage: 90 MILLIGRAM, QD
     Dates: start: 20240404, end: 20240410
  2. BRIGATINIB [Suspect]
     Active Substance: BRIGATINIB
     Dosage: 180 MILLIGRAM, QD
     Dates: start: 20240411
  3. LAFUTIDINE [Concomitant]
     Active Substance: LAFUTIDINE
     Indication: Gastritis prophylaxis
     Dosage: 10 MILLIGRAM, BID
     Dates: start: 20240502
  4. SODIUM ALGINATE [Concomitant]
     Active Substance: SODIUM ALGINATE
     Indication: Gastritis prophylaxis
     Dosage: 60 MILLILITER, QD
     Dates: start: 20240620
  5. LOPERAMIDE [Concomitant]
     Active Substance: LOPERAMIDE
     Indication: Prophylaxis against diarrhoea
     Dosage: 2 MILLIGRAM, BID
     Dates: start: 20240730
  6. MOSAPRIDE CITRATE [Concomitant]
     Active Substance: MOSAPRIDE CITRATE
     Indication: Gastritis prophylaxis
     Dosage: 5 MILLIGRAM, TID
     Dates: start: 20240620
  7. Rabeone [Concomitant]
     Indication: Gastritis prophylaxis
     Dosage: 20 MILLIGRAM, QD
     Dates: start: 20240620
  8. TAMBOCOR [Concomitant]
     Active Substance: FLECAINIDE ACETATE
     Indication: Atrial fibrillation
     Dosage: 50 MILLIGRAM, BID
  9. Acertil arginine [Concomitant]
     Indication: Atrial fibrillation
     Dosage: 5 MILLIGRAM, QD

REACTIONS (1)
  - Haematochezia [Recovered/Resolved]

NARRATIVE: CASE EVENT DATE: 20250209
